FAERS Safety Report 6229805-1 (Version None)
Quarter: 2009Q2

REPORT INFORMATION
  Report Type: 
  Country: None (occurrence: None)
  Receive Date: 20090615
  Receipt Date: 20090603
  Transmission Date: 20091009
  Serious: Yes (Other)
  Sender: FDA-Public Use
  Company Number: US-PFIZER INC-2009222834

PATIENT
  Sex: Female

DRUGS (1)
  1. CHANTIX [Suspect]
     Indication: SMOKING CESSATION THERAPY
     Dosage: UNK
     Route: 048
     Dates: start: 20080228

REACTIONS (6)
  - ANGER [None]
  - CHEST DISCOMFORT [None]
  - DEPRESSION [None]
  - HYPERGLYCAEMIA [None]
  - METABOLIC ACIDOSIS [None]
  - MUSCLE SPASMS [None]
